FAERS Safety Report 8094533-7 (Version None)
Quarter: 2012Q1

REPORT INFORMATION
  Report Type: 
  Country: None (occurrence: None)
  Receive Date: 20120131
  Receipt Date: 20120120
  Transmission Date: 20120608
  Serious: Yes (Hospitalization)
  Sender: FDA-Public Use
  Company Number: US-JNJFOC-20111010781

PATIENT
  Sex: Male
  Weight: 39.4 kg

DRUGS (12)
  1. INFLIXIMAB, RECOMBINANT [Suspect]
     Indication: INFLAMMATORY BOWEL DISEASE
     Route: 042
     Dates: start: 20100618, end: 20100730
  2. IRON [Concomitant]
  3. CALCIUM [Concomitant]
  4. LURIDE [Concomitant]
  5. ROCALTROL [Concomitant]
  6. ASCORBIC ACID [Concomitant]
  7. FISH OIL [Concomitant]
  8. VITAMIN D [Concomitant]
  9. METHOTREXATE [Suspect]
     Indication: CROHN'S DISEASE
  10. ZENPEP [Concomitant]
  11. BUDESONIDE [Concomitant]
  12. MULTI-VITAMINS [Concomitant]

REACTIONS (1)
  - CROHN'S DISEASE [None]
